FAERS Safety Report 6049283-5 (Version None)
Quarter: 2009Q1

REPORT INFORMATION
  Report Type: 
  Country: None (occurrence: None)
  Receive Date: 20090123
  Receipt Date: 20090121
  Transmission Date: 20090719
  Serious: No
  Sender: FDA-Public Use
  Company Number: US-B.I. PHARMACEUTICALS,INC./RIDGEFIELD-2009-BP-00130BP

PATIENT
  Sex: Female

DRUGS (6)
  1. CATAPRES-TTS-1 [Suspect]
     Indication: HYPERTENSION
     Dosage: .2MG
     Route: 062
     Dates: start: 20060601
  2. NORVASC [Concomitant]
     Indication: BLOOD PRESSURE
     Dosage: 5MG
  3. AMILORIDE HYDROCHLORIDE [Concomitant]
     Indication: BLOOD PRESSURE
     Dosage: 10MG
  4. FLECAINIDE ACETATE [Concomitant]
     Indication: BLOOD PRESSURE
     Dosage: 200MG
  5. KLOR-CON [Concomitant]
     Indication: BLOOD POTASSIUM
     Dosage: 80MEQ
  6. DILTIAZEM [Concomitant]
     Indication: BLOOD PRESSURE
     Dosage: 25MG

REACTIONS (3)
  - BLOOD PRESSURE DECREASED [None]
  - DIZZINESS [None]
  - HEART RATE DECREASED [None]
